FAERS Safety Report 12160312 (Version 2)
Quarter: 2016Q1

REPORT INFORMATION
  Report Type: Spontaneous
  Country: BD (occurrence: BD)
  Receive Date: 20160308
  Receipt Date: 20160310
  Transmission Date: 20160526
  Serious: No
  Sender: FDA-Public Use
  Company Number: BD-SA-2016SA042738

PATIENT
  Age: 21 Year
  Sex: Female
  Weight: 58 kg

DRUGS (4)
  1. INSULIN GLULISINE [Suspect]
     Active Substance: INSULIN GLULISINE
     Indication: GESTATIONAL DIABETES
     Route: 058
     Dates: start: 20151208
  2. IRON/FOLIC ACID/MINERALS NOS/VITAMINS NOS [Concomitant]
     Route: 048
     Dates: start: 20151208
  3. VITAMIN B COMPLEX [Concomitant]
     Active Substance: CYANOCOBALAMIN\DEXPANTHENOL\NIACINAMIDE\PYRIDOXINE HYDROCHLORIDE\RIBOFLAVIN 5^-PHOSPHATE SODIUM\THIAMINE HYDROCHLORIDE\VITAMIN B COMPLEX
     Route: 048
     Dates: start: 20151208
  4. CALCIUM CARBONATE. [Concomitant]
     Active Substance: CALCIUM CARBONATE
     Dosage: 125 MG
     Route: 048
     Dates: start: 20151208

REACTIONS (1)
  - Exposure during pregnancy [Unknown]
